FAERS Safety Report 7438423-9 (Version None)
Quarter: 2011Q2

REPORT INFORMATION
  Report Type: 
  Country: None (occurrence: None)
  Receive Date: 20110426
  Receipt Date: 20110418
  Transmission Date: 20111010
  Serious: Yes (Death)
  Sender: FDA-Public Use
  Company Number: US-CELGENEUS-163-21880-11042338

PATIENT
  Sex: Male

DRUGS (7)
  1. REVLIMID [Suspect]
     Dosage: 10 MILLIGRAM
     Route: 048
     Dates: start: 20101227, end: 20110101
  2. ASPIRIN [Concomitant]
     Route: 065
  3. OXYBUTYNIN [Concomitant]
     Route: 065
  4. ACETAMINOPHEN [Concomitant]
     Route: 065
  5. DIVALPROEX [Concomitant]
     Route: 065
  6. THEOPHYLLINE [Concomitant]
     Route: 065
  7. SOTALOL HCL [Concomitant]
     Route: 065

REACTIONS (1)
  - DEATH [None]
